FAERS Safety Report 4890374-X (Version None)
Quarter: 2005Q4

REPORT INFORMATION
  Report Type: 
  Country: None (occurrence: None)
  Receive Date: 20051216
  Receipt Date: 20051026
  Transmission Date: 20060501
  Serious: No
  Sender: FDA-Public Use
  Company Number: USA040466367

PATIENT
  Age: 40 Year
  Sex: Male
  Weight: 93 kg

DRUGS (7)
  1. CIALIS [Suspect]
     Indication: ERECTILE DYSFUNCTION
     Dosage: 20 MG
     Dates: start: 20040429
  2. ENZYTE [Concomitant]
  3. PAXIL [Concomitant]
  4. BEXTRA [Concomitant]
  5. DETROL LA [Concomitant]
  6. AMBIEN [Concomitant]
  7. FERREX (POLYSACCHARIDE-IRON COMPLEX) [Concomitant]

REACTIONS (5)
  - BLOOD IRON DECREASED [None]
  - DRUG INEFFECTIVE [None]
  - SPONTANEOUS PENILE ERECTION [None]
  - THERAPEUTIC RESPONSE DECREASED [None]
  - THERAPEUTIC RESPONSE DELAYED [None]
